FAERS Safety Report 14170504 (Version 1)
Quarter: 2017Q4

REPORT INFORMATION
  Report Type: Spontaneous
  Country: US (occurrence: None)
  Receive Date: 20171108
  Receipt Date: 20171108
  Transmission Date: 20180321
  Serious: Yes (Other)
  Sender: FDA-Public Use
  Company Number: None

PATIENT
  Age: 76 Year
  Sex: Female
  Weight: 74.84 kg

DRUGS (3)
  1. CRANBERRY PILLS (NATURE^S BOUNTY) [Concomitant]
  2. CENTRUM VITAMINS FOR WOMEN [Concomitant]
  3. LOSARTAN. [Suspect]
     Active Substance: LOSARTAN
     Indication: HYPERTENSION
     Dates: start: 20171008

REACTIONS (3)
  - Dizziness [None]
  - Blood pressure fluctuation [None]
  - Product substitution issue [None]

NARRATIVE: CASE EVENT DATE: 201710
